FAERS Safety Report 4439097-1 (Version None)
Quarter: 2004Q3

REPORT INFORMATION
  Report Type: 
  Country: None (occurrence: None)
  Receive Date: 20040901
  Receipt Date: 20040824
  Transmission Date: 20050211
  Serious: Yes (Other)
  Sender: FDA-Public Use
  Company Number: PHBS2004FR11198

PATIENT
  Age: 36 Year
  Sex: Male

DRUGS (4)
  1. CYCLOSPORINE [Suspect]
     Indication: RENAL TRANSPLANT
     Dosage: 100 MG/DAY
     Route: 065
  2. PREDNISONE [Concomitant]
     Dosage: 5 MG/D
  3. NICARDIPINE HCL [Suspect]
  4. AMOXICILLIN [Suspect]

REACTIONS (5)
  - FIBROUS HISTIOCYTOMA [None]
  - INJECTION SITE EXTRAVASATION [None]
  - SKIN INFLAMMATION [None]
  - SKIN NODULE [None]
  - THROMBOPHLEBITIS SUPERFICIAL [None]
